FAERS Safety Report 8295197-X (Version None)
Quarter: 2012Q2

REPORT INFORMATION
  Report Type: 
  Country: None (occurrence: None)
  Receive Date: 20120418
  Receipt Date: 20120412
  Transmission Date: 20120825
  Serious: Yes (Hospitalization)
  Sender: FDA-Public Use
  Company Number: DE-VERTEX PHARMACEUTICALS INC.-000000000000000205

PATIENT
  Age: 51 Year
  Sex: Female

DRUGS (4)
  1. RIBAVIRINE [Concomitant]
     Indication: HEPATITIS C
     Route: 048
     Dates: start: 20111209, end: 20120202
  2. TELAPREVIR [Suspect]
     Indication: HEPATITIS C
     Dosage: DOSAGE FORM: TABLET
     Route: 048
     Dates: start: 20111209, end: 20120203
  3. PEGINTERFERON ALFA [Concomitant]
     Indication: HEPATITIS C
     Route: 058
     Dates: start: 20111209, end: 20120203
  4. RIBAVIRINE [Concomitant]
     Route: 048
     Dates: start: 20120203

REACTIONS (1)
  - RASH [None]
